FAERS Safety Report 23658597 (Version 1)
Quarter: 2024Q1

REPORT INFORMATION
  Report Type: Spontaneous
  Country: CA (occurrence: CA)
  Receive Date: 20240321
  Receipt Date: 20240321
  Transmission Date: 20240410
  Serious: Yes (Other)
  Sender: FDA-Public Use
  Company Number: CA-TEVA-VS-3172996

PATIENT
  Age: 20 Year
  Sex: Female
  Weight: 44 kg

DRUGS (15)
  1. METHOTREXATE SODIUM [Suspect]
     Active Substance: METHOTREXATE SODIUM
     Indication: Systemic lupus erythematosus
     Route: 065
  2. METHOTREXATE SODIUM [Suspect]
     Active Substance: METHOTREXATE SODIUM
     Indication: Systemic lupus erythematosus
     Route: 065
  3. PREDNISONE [Concomitant]
     Active Substance: PREDNISONE
     Dosage: DOSAGE FORM: NOT SPECIFIED
     Route: 065
  4. PREDNISONE [Concomitant]
     Active Substance: PREDNISONE
     Route: 065
  5. PREDNISONE [Concomitant]
     Active Substance: PREDNISONE
     Route: 065
  6. DIVALPROEX SODIUM [Concomitant]
     Active Substance: DIVALPROEX SODIUM
     Route: 065
  7. AZATHIOPRINE [Concomitant]
     Active Substance: AZATHIOPRINE
     Dosage: DOSAGE FORM: NOT SPECIFIED
  8. BIOTIN [Concomitant]
     Active Substance: BIOTIN
     Dosage: DOSAGE FORM : NOT SPECIFIED
     Route: 065
  9. CLOBETASOL [Concomitant]
     Active Substance: CLOBETASOL
     Route: 061
  10. HYDROXYCHLOROQUINE [Concomitant]
     Active Substance: HYDROXYCHLOROQUINE
     Route: 065
  11. MYCOPHENOLATE MOFETIL [Concomitant]
     Route: 065
  12. MYCOPHENOLATE MOFETIL [Concomitant]
     Route: 065
  13. MYCOPHENOLATE MOFETIL [Concomitant]
     Route: 065
  14. MYCOPHENOLATE MOFETIL [Concomitant]
     Route: 065
  15. MYCOPHENOLATE MOFETIL [Concomitant]
     Route: 065

REACTIONS (4)
  - Arthritis [Unknown]
  - Cutaneous vasculitis [Unknown]
  - Drug ineffective [Unknown]
  - Off label use [Unknown]
